FAERS Safety Report 7217403-2 (Version None)
Quarter: 2011Q1

REPORT INFORMATION
  Report Type: 
  Country: None (occurrence: None)
  Receive Date: 20110110
  Receipt Date: 20101228
  Transmission Date: 20110831
  Serious: Yes (Hospitalization)
  Sender: FDA-Public Use
  Company Number: PHHY2010JP78222

PATIENT
  Sex: Female
  Weight: 54 kg

DRUGS (11)
  1. DRUG THERAPY NOS [Concomitant]
     Indication: NASOPHARYNGITIS
     Dosage: 400 MG
     Route: 048
     Dates: start: 20101025, end: 20101028
  2. STEROIDS SEMI PULSE THERAPHY [Concomitant]
  3. PREDNISOLONE [Concomitant]
     Dosage: 30 MG DAILY
     Dates: start: 20101112, end: 20101117
  4. DIOVAN [Suspect]
     Indication: HYPERTENSION
     Dosage: 40 MG, QD
     Route: 048
     Dates: start: 20090924, end: 20101104
  5. MEROPENEM [Concomitant]
  6. PRIDOL [Concomitant]
     Dosage: 300 ML, UNK
  7. TOCLASE [Concomitant]
     Indication: NASOPHARYNGITIS
     Dosage: 90 MG
     Route: 048
     Dates: start: 20101025, end: 20101028
  8. CIPROXACIN [Concomitant]
  9. MEDROL [Concomitant]
     Dosage: UNK
     Dates: start: 20101117
  10. CLARITHROMYCIN [Concomitant]
     Dosage: 2 DF, UNK
     Dates: start: 20101025, end: 20101029
  11. OXYGEN [Concomitant]
     Dosage: 3 L

REACTIONS (7)
  - INTERSTITIAL LUNG DISEASE [None]
  - UPPER RESPIRATORY TRACT INFLAMMATION [None]
  - DYSPNOEA [None]
  - RHINORRHOEA [None]
  - LYMPHOCYTE STIMULATION TEST POSITIVE [None]
  - COUGH [None]
  - PHARYNGEAL DISORDER [None]
